FAERS Safety Report 10204565 (Version 1)
Quarter: 2014Q2

REPORT INFORMATION
  Report Type: Spontaneous
  Country: US (occurrence: US)
  Receive Date: 20140529
  Receipt Date: 20140529
  Transmission Date: 20141212
  Serious: Yes (Other)
  Sender: FDA-Public Use
  Company Number: US-ELI_LILLY_AND_COMPANY-US201405006783

PATIENT
  Sex: Male

DRUGS (1)
  1. DULOXETINE HYDROCHLORIDE [Suspect]
     Indication: PRODUCT USED FOR UNKNOWN INDICATION
     Dosage: 60 MG, UNKNOWN

REACTIONS (3)
  - Cardiac fibrillation [Unknown]
  - Heart rate increased [Unknown]
  - Anxiety [Unknown]
